FAERS Safety Report 6251913-X (Version None)
Quarter: 2009Q2

REPORT INFORMATION
  Report Type: 
  Country: None (occurrence: None)
  Receive Date: 20090630
  Receipt Date: 20090617
  Transmission Date: 20091009
  Serious: Yes (Hospitalization)
  Sender: FDA-Public Use
  Company Number: JP-ELI_LILLY_AND_COMPANY-JP200906005376

PATIENT
  Age: 54 Year
  Sex: Female

DRUGS (4)
  1. ZYPREXA [Suspect]
     Indication: SCHIZOPHRENIA
     Dosage: 20 MG, DAILY (1/D)
     Route: 050
     Dates: start: 20090526, end: 20090528
  2. BENZALIN [Concomitant]
     Indication: INSOMNIA
     Dosage: 10 MG, DAILY (1/D)
     Route: 050
     Dates: start: 20090526
  3. LEVOTOMIN [Concomitant]
     Indication: SCHIZOPHRENIA
     Dosage: 50 MG, DAILY (1/D)
     Route: 050
     Dates: start: 20090526
  4. LINTON [Concomitant]
     Indication: SCHIZOPHRENIA
     Dosage: 10 MG, DAILY (1/D)
     Route: 042
     Dates: start: 20090526

REACTIONS (2)
  - DRUG ERUPTION [None]
  - INTENTIONAL DRUG MISUSE [None]
